FAERS Safety Report 5819065-5 (Version None)
Quarter: 2008Q3

REPORT INFORMATION
  Report Type: 
  Country: None (occurrence: None)
  Receive Date: 20080723
  Receipt Date: 20080721
  Transmission Date: 20090109
  Serious: Yes (Hospitalization)
  Sender: FDA-Public Use
  Company Number: FR-EISAI MEDICAL RESEARCH-E2020-01653-SPO-FR

PATIENT
  Age: 76 Year
  Sex: Female

DRUGS (8)
  1. ARICEPT [Suspect]
     Indication: DRUG USE FOR UNKNOWN INDICATION
     Dosage: UNKNOWN
     Route: 048
     Dates: start: 20020101, end: 20050401
  2. MEMANTINE HCL [Suspect]
     Indication: DRUG USE FOR UNKNOWN INDICATION
     Dosage: UNKNOWN
     Route: 048
     Dates: start: 20030301
  3. ZYPREXA [Suspect]
     Indication: DRUG USE FOR UNKNOWN INDICATION
     Dosage: UNKNOWN
     Route: 048
     Dates: start: 20021201, end: 20030601
  4. ZYPREXA [Suspect]
     Dosage: DOSE DECREASED
     Route: 048
     Dates: start: 20030601
  5. MEPROBAMATE [Concomitant]
     Dates: start: 20030101
  6. TRIMEPRAZINE TAB [Concomitant]
     Dates: start: 20030101
  7. TIAPRIDE [Concomitant]
     Dates: start: 20030101
  8. CORTICOIDS [Concomitant]

REACTIONS (1)
  - DYSTONIA [None]
